FAERS Safety Report 8617573-5 (Version None)
Quarter: 2012Q3

REPORT INFORMATION
  Report Type: 
  Country: None (occurrence: None)
  Receive Date: 20120824
  Receipt Date: 20111116
  Transmission Date: 20120928
  Serious: No
  Sender: FDA-Public Use
  Company Number: US-ASTRAZENECA-2011SE70199

PATIENT
  Age: 56 Year
  Sex: Female

DRUGS (2)
  1. SYMBICORT [Suspect]
     Dosage: UNKNOWN FREQUENCY
     Route: 055
     Dates: end: 20111001
  2. BETA-BLOCKER [Concomitant]

REACTIONS (2)
  - DYSPNOEA [None]
  - WRONG TECHNIQUE IN DRUG USAGE PROCESS [None]
